FAERS Safety Report 4925284-2 (Version None)
Quarter: 2006Q1

REPORT INFORMATION
  Report Type: 
  Country: None (occurrence: None)
  Receive Date: 20060228
  Receipt Date: 20051116
  Transmission Date: 20060701
  Serious: Yes (Hospitalization)
  Sender: FDA-Public Use
  Company Number: JP-GLAXOSMITHKLINE-B0400723A

PATIENT
  Age: 23 Year
  Sex: Female

DRUGS (7)
  1. ZIAGEN [Suspect]
     Indication: HIV INFECTION
     Dosage: 300MG TWICE PER DAY
     Route: 048
     Dates: start: 20040303
  2. VIDEX EC [Suspect]
     Indication: HIV INFECTION
     Dosage: 250MG PER DAY
     Route: 048
     Dates: start: 20021002, end: 20050322
  3. KALETRA [Suspect]
     Indication: HIV INFECTION
     Dosage: 6UNIT PER DAY
     Route: 048
     Dates: start: 20021002
  4. ZERIT [Suspect]
     Indication: HIV INFECTION
     Dosage: 60MG PER DAY
     Route: 048
     Dates: start: 20031119, end: 20040302
  5. EPIVIR [Suspect]
     Indication: HIV INFECTION
     Dosage: 150MG TWICE PER DAY
     Route: 048
     Dates: start: 20031119
  6. VIRACEPT [Suspect]
     Dates: start: 20030806, end: 20040302
  7. CLARITHROMYCIN [Suspect]
     Indication: MYCOBACTERIUM AVIUM COMPLEX INFECTION
     Dosage: 400MG TWICE PER DAY
     Route: 048
     Dates: start: 20040401, end: 20050331

REACTIONS (5)
  - BLOOD TRIGLYCERIDES INCREASED [None]
  - CERVICAL DYSPLASIA [None]
  - DIFFICULTY IN WALKING [None]
  - HERPES SIMPLEX [None]
  - VULVOVAGINAL DISCOMFORT [None]
